FAERS Safety Report 5554270-7 (Version None)
Quarter: 2007Q4

REPORT INFORMATION
  Report Type: 
  Country: None (occurrence: None)
  Receive Date: 20071213
  Receipt Date: 20071207
  Transmission Date: 20080405
  Serious: Yes (Death)
  Sender: FDA-Public Use
  Company Number: A0698691A

PATIENT
  Sex: Male

DRUGS (4)
  1. SERETIDE [Suspect]
     Indication: ASTHMA
     Route: 055
     Dates: start: 20060101, end: 20070930
  2. DEFLAZACORT [Concomitant]
     Dosage: .5TAB ALTERNATE DAYS
     Dates: start: 19970101, end: 20070930
  3. NIFEDIPINE [Concomitant]
     Dates: start: 19970101, end: 20070930
  4. AEROLIN [Concomitant]
     Indication: ASTHMA
     Dosage: 1PUFF PER DAY
     Route: 055
     Dates: start: 19820101, end: 20070930

REACTIONS (1)
  - PROSTATE CANCER [None]
